FAERS Safety Report 4498706-1 (Version None)
Quarter: 2004Q3

REPORT INFORMATION
  Report Type: 
  Country: None (occurrence: None)
  Receive Date: 20040927
  Receipt Date: 20040618
  Transmission Date: 20050211
  Serious: No
  Sender: FDA-Public Use
  Company Number: USA040670585

PATIENT
  Age: 50 Year
  Sex: Male

DRUGS (1)
  1. STRATTERA [Suspect]
     Dosage: 40 MG/2 DAY

REACTIONS (2)
  - BLOOD PRESSURE INCREASED [None]
  - FLUSHING [None]
